FAERS Safety Report 5867346-1 (Version None)
Quarter: 2008Q3

REPORT INFORMATION
  Report Type: 
  Country: None (occurrence: None)
  Receive Date: 20080902
  Receipt Date: 20080822
  Transmission Date: 20090109
  Serious: Yes (Other)
  Sender: FDA-Public Use
  Company Number: PHBS2008US05507

PATIENT
  Age: 35 Year
  Sex: Female
  Weight: 194 kg

DRUGS (9)
  1. OXYTOCIN [Suspect]
  2. MAGNESIUM SULFATE [Concomitant]
     Dosage: 2 G/H
  3. ACETAMINOPHEN [Concomitant]
  4. ALBUTEROL [Concomitant]
  5. METOCLOPRAMIDE [Concomitant]
     Dosage: 10 MG, UNK
  6. FAMOTIDINE [Concomitant]
     Dosage: 20 MG, UNK
     Route: 042
  7. BUPIVACAINE [Concomitant]
  8. FENTANYL-25 [Concomitant]
  9. MORPHINE [Concomitant]

REACTIONS (3)
  - HYPOTENSION [None]
  - NAUSEA [None]
  - VOMITING [None]
